FAERS Safety Report 4847310-1 (Version None)
Quarter: 2005Q4

REPORT INFORMATION
  Report Type: 
  Country: None (occurrence: None)
  Receive Date: 20051205
  Receipt Date: 20051118
  Transmission Date: 20060501
  Serious: Yes (Hospitalization, Other)
  Sender: FDA-Public Use
  Company Number: 2005BI006092

PATIENT
  Age: 51 Year
  Sex: Male
  Weight: 74.8435 kg

DRUGS (3)
  1. AVONEX [Suspect]
     Indication: MULTIPLE SCLEROSIS
     Dosage: 30 UG; QW; IM
     Route: 030
     Dates: start: 19990401, end: 20030101
  2. AVONEX [Suspect]
     Indication: MULTIPLE SCLEROSIS
     Dosage: 30 UG; QW; IM
     Route: 030
     Dates: start: 20030101, end: 20051105
  3. BACLOFEN [Concomitant]

REACTIONS (15)
  - ABNORMAL BEHAVIOUR [None]
  - ASTHENIA [None]
  - DISTURBANCE IN ATTENTION [None]
  - DYSSTASIA [None]
  - FATIGUE [None]
  - GRAND MAL CONVULSION [None]
  - LIVING IN RESIDENTIAL INSTITUTION [None]
  - LOSS OF CONSCIOUSNESS [None]
  - MEMORY IMPAIRMENT [None]
  - MENTAL DISORDER [None]
  - OBSESSIVE-COMPULSIVE DISORDER [None]
  - PERONEAL NERVE PALSY [None]
  - PROGRESSIVE MULTIPLE SCLEROSIS [None]
  - WALKING AID USER [None]
  - WHEELCHAIR USER [None]
